FAERS Safety Report 10242225 (Version 1)
Quarter: 2014Q2

REPORT INFORMATION
  Report Type: Report from Study
  Country: CH (occurrence: CH)
  Receive Date: 20140617
  Receipt Date: 20140617
  Transmission Date: 20141212
  Serious: Yes (Other)
  Sender: FDA-Public Use
  Company Number: CH-UCBSA-2014001699

PATIENT
  Sex: 0

DRUGS (2)
  1. CERTOLIZUMAB PEGOL [Suspect]
     Indication: CROHN^S DISEASE
  2. INFLIXIMAB [Suspect]
     Indication: CROHN^S DISEASE

REACTIONS (1)
  - Psoriasis [Unknown]
